FAERS Safety Report 24067407 (Version 4)
Quarter: 2024Q3

REPORT INFORMATION
  Report Type: Spontaneous
  Country: US (occurrence: US)
  Receive Date: 20240709
  Receipt Date: 20240819
  Transmission Date: 20241017
  Serious: No
  Sender: SANDOZ
  Company Number: US-SANDOZ-SDZ2024US061244

PATIENT
  Sex: Female

DRUGS (6)
  1. DEXEDRINE [Suspect]
     Active Substance: DEXTROAMPHETAMINE SULFATE
     Indication: Product used for unknown indication
     Route: 065
  2. LEVOTHYROXINE [Suspect]
     Active Substance: LEVOTHYROXINE\LEVOTHYROXINE SODIUM
     Indication: Product used for unknown indication
     Dosage: 75 UG, QD
     Route: 065
  3. MAXALT [Suspect]
     Active Substance: RIZATRIPTAN BENZOATE
     Indication: Headache
     Route: 065
  4. RITALIN [Suspect]
     Active Substance: METHYLPHENIDATE HYDROCHLORIDE
     Indication: Product used for unknown indication
     Dosage: 5 MG
     Route: 065
  5. RITALIN [Suspect]
     Active Substance: METHYLPHENIDATE HYDROCHLORIDE
     Dosage: 2.5 MG, Q4H 3X/DAY
     Route: 065
     Dates: start: 1996
  6. WELLBUTRIN [Suspect]
     Active Substance: BUPROPION HYDROCHLORIDE
     Indication: Product used for unknown indication
     Route: 065

REACTIONS (14)
  - Breath odour [Unknown]
  - Hunger [Unknown]
  - Cluster headache [Unknown]
  - Nightmare [Unknown]
  - Agitation [Unknown]
  - Insomnia [Unknown]
  - Somnolence [Unknown]
  - Palpitations [Unknown]
  - Fatigue [Unknown]
  - Restlessness [Unknown]
  - Abdominal pain upper [Unknown]
  - Therapeutic response decreased [Unknown]
  - Product substitution issue [Unknown]
  - Incorrect dose administered [Unknown]
